FAERS Safety Report 6173738-6 (Version None)
Quarter: 2009Q2

REPORT INFORMATION
  Report Type: 
  Country: None (occurrence: None)
  Receive Date: 20090430
  Receipt Date: 20090428
  Transmission Date: 20091009
  Serious: Yes (Death, Hospitalization)
  Sender: FDA-Public Use
  Company Number: PHHY2009JP16206

PATIENT
  Age: 82 Year
  Sex: Male

DRUGS (2)
  1. EXJADE [Suspect]
     Indication: MYELODYSPLASTIC SYNDROME
     Dosage: 500MG DAILY
     Route: 048
     Dates: start: 20081205, end: 20081224
  2. CRAVIT [Concomitant]
     Dosage: 100MG
     Route: 048
     Dates: start: 20081107, end: 20081226

REACTIONS (2)
  - DEATH [None]
  - RESPIRATORY ARREST [None]
